FAERS Safety Report 14079036 (Version 1)
Quarter: 2017Q4

REPORT INFORMATION
  Report Type: Spontaneous
  Country: CA (occurrence: CA)
  Receive Date: 20171012
  Receipt Date: 20171012
  Transmission Date: 20180321
  Serious: Yes (Other)
  Sender: FDA-Public Use
  Company Number: CA-BAYER-2017-189518

PATIENT
  Age: 86 Year
  Sex: Female

DRUGS (1)
  1. RESTORALAX [Suspect]
     Active Substance: POLYETHYLENE GLYCOL 3350
     Indication: CONSTIPATION
     Dosage: UNK UNK, QD
     Dates: start: 20170825

REACTIONS (3)
  - Chromaturia [None]
  - Jaundice [None]
  - Ocular icterus [None]

NARRATIVE: CASE EVENT DATE: 20171001
